FAERS Safety Report 4932151-7 (Version None)
Quarter: 2006Q1

REPORT INFORMATION
  Report Type: 
  Country: None (occurrence: None)
  Receive Date: 20060227
  Receipt Date: 20060213
  Transmission Date: 20060701
  Serious: Yes (Hospitalization)
  Sender: FDA-Public Use
  Company Number: HQWYE798414FEB06

PATIENT
  Age: 72 Year
  Sex: Female

DRUGS (7)
  1. TRICEF (CEFIXIME, TABLET) [Suspect]
     Indication: PNEUMONIA
     Route: 048
     Dates: start: 20051205, end: 20051206
  2. LOSARTAN POTASSIUM [Concomitant]
  3. PRAVASTATIN SODIUM [Concomitant]
  4. ATENOLOL [Concomitant]
  5. ALLOPURINOL [Concomitant]
  6. INDAPAMIDE [Concomitant]
  7. PROPAFENONE HYDROCHLORIDE [Concomitant]

REACTIONS (8)
  - BLOOD CREATININE INCREASED [None]
  - BLOOD GLUCOSE INCREASED [None]
  - BLOOD UREA INCREASED [None]
  - CONDITION AGGRAVATED [None]
  - DRUG DOSE OMISSION [None]
  - HYPERGLYCAEMIA [None]
  - PNEUMONIA [None]
  - URINARY RETENTION [None]
